FAERS Safety Report 8838210 (Version 7)
Quarter: 2014Q1

REPORT INFORMATION
  Report Type: Report from Study
  Country: BR (occurrence: BR)
  Receive Date: 20121012
  Receipt Date: 20140204
  Transmission Date: 20141002
  Serious: Yes (Hospitalization, Other)
  Sender: FDA-Public Use
  Company Number: BR-ROCHE-1144548

PATIENT
  Age: 49 Year
  Sex: Female
  Weight: 68 kg

DRUGS (9)
  1. ACTEMRA [Suspect]
     Indication: RHEUMATOID ARTHRITIS
     Route: 042
     Dates: start: 20100208, end: 20130501
  2. MABTHERA [Suspect]
     Indication: RHEUMATOID ARTHRITIS
     Dosage: LAST DOSE WAS IN DEC/2013
     Route: 042
     Dates: start: 20130607
  3. CYMBALTA [Concomitant]
     Route: 065
  4. CEFALEXIN [Concomitant]
  5. DIMORF [Concomitant]
     Indication: PAIN
  6. SELOZOK [Concomitant]
     Indication: HYPERTENSION
  7. HIGROTON [Concomitant]
     Indication: HYPERTENSION
  8. CLONAZEPAM [Concomitant]
  9. AMITRIPTYLINE [Concomitant]

REACTIONS (26)
  - Intervertebral disc protrusion [Unknown]
  - Weight increased [Recovering/Resolving]
  - Asphyxia [Recovered/Resolved]
  - Drug hypersensitivity [Recovered/Resolved]
  - Spinal disorder [Unknown]
  - Pain [Recovering/Resolving]
  - Rheumatoid factor increased [Not Recovered/Not Resolved]
  - Arthralgia [Not Recovered/Not Resolved]
  - Joint swelling [Not Recovered/Not Resolved]
  - Erythema [Not Recovered/Not Resolved]
  - Dizziness [Unknown]
  - Fatigue [Unknown]
  - Paraesthesia [Unknown]
  - Insomnia [Recovered/Resolved]
  - Drug ineffective [Unknown]
  - Throat irritation [Recovered/Resolved]
  - Eye swelling [Recovered/Resolved]
  - Oedema mouth [Recovered/Resolved]
  - Pruritus [Unknown]
  - Swelling [Unknown]
  - Nausea [Unknown]
  - Vomiting [Unknown]
  - Diabetes mellitus [Not Recovered/Not Resolved]
  - Hypertension [Unknown]
  - Allergy to chemicals [Unknown]
  - Reaction to colouring [Unknown]
